FAERS Safety Report 7591927-0 (Version None)
Quarter: 2011Q3

REPORT INFORMATION
  Report Type: 
  Country: None (occurrence: None)
  Receive Date: 20110701
  Receipt Date: 20110701
  Transmission Date: 20111222
  Serious: Yes (Hospitalization)
  Sender: FDA-Public Use
  Company Number: None

PATIENT
  Sex: Female
  Weight: 50.8029 kg

DRUGS (1)
  1. ALENDRONATE SODIUM [Suspect]
     Indication: OSTEOPOROSIS
     Dosage: 1 WEEKLY PO
     Route: 048
     Dates: start: 20110414, end: 20110529

REACTIONS (5)
  - OESOPHAGITIS [None]
  - ATRIAL FIBRILLATION [None]
  - OROPHARYNGEAL PAIN [None]
  - MUSCULOSKELETAL CHEST PAIN [None]
  - DYSPEPSIA [None]
